FAERS Safety Report 9344303 (Version 1)
Quarter: 2013Q2

REPORT INFORMATION
  Report Type: Spontaneous
  Country: US (occurrence: None)
  Receive Date: 20130611
  Receipt Date: 20130611
  Transmission Date: 20140414
  Serious: Yes (Death)
  Sender: FDA-Public Use
  Company Number: None

PATIENT
  Age: 42 Year
  Sex: Male
  Weight: 108.86 kg

DRUGS (1)
  1. METHADONE [Suspect]
     Indication: PAIN
     Dates: start: 20120328, end: 20120330

REACTIONS (1)
  - Overdose [None]
